FAERS Safety Report 17161414 (Version 3)
Quarter: 2020Q1

REPORT INFORMATION
  Report Type: Spontaneous
  Country: GB (occurrence: GB)
  Receive Date: 20191216
  Receipt Date: 20200107
  Transmission Date: 20200409
  Serious: Yes (Other)
  Sender: FDA-Public Use
  Company Number: GB-B.I. PHARMACEUTICALS,INC./RIDGEFIELD-2019-12-118818

PATIENT
  Age: 3 Month
  Sex: Male

DRUGS (7)
  1. VIRAMUNE [Suspect]
     Active Substance: NEVIRAPINE
     Indication: PERINATAL HIV INFECTION
     Route: 065
  2. ZIDOVUDINE. [Suspect]
     Active Substance: ZIDOVUDINE
     Indication: PERINATAL HIV INFECTION
     Route: 065
  3. GANCICLOVIR [GANCICLOVIR SODIUM] [Suspect]
     Active Substance: GANCICLOVIR SODIUM
     Indication: CONGENITAL CYTOMEGALOVIRUS INFECTION
     Route: 042
  4. ABACAVIR. [Suspect]
     Active Substance: ABACAVIR
     Indication: PERINATAL HIV INFECTION
     Route: 065
  5. VALGANCICLOVIR [VALGANCICLOVIR HYDROCHLORIDE] [Suspect]
     Active Substance: VALGANCICLOVIR
     Indication: CONGENITAL CYTOMEGALOVIRUS INFECTION
     Route: 048
  6. LAMIVUDINE. [Suspect]
     Active Substance: LAMIVUDINE
     Indication: PERINATAL HIV INFECTION
     Route: 065
  7. LOPINAVIR [Suspect]
     Active Substance: LOPINAVIR
     Indication: PERINATAL HIV INFECTION
     Route: 065

REACTIONS (1)
  - Pancytopenia [Recovered/Resolved]
